FAERS Safety Report 8513633-8 (Version None)
Quarter: 2012Q3

REPORT INFORMATION
  Report Type: 
  Country: None (occurrence: None)
  Receive Date: 20120717
  Receipt Date: 20120619
  Transmission Date: 20120928
  Serious: No
  Sender: FDA-Public Use
  Company Number: US-PFIZER INC-2012167885

PATIENT
  Sex: Female
  Weight: 56.236 kg

DRUGS (7)
  1. COMPAZINE [Suspect]
  2. MORPHINE SULFATE [Suspect]
  3. IBUPROFEN [Suspect]
     Dosage: 200 MG, AS NEEDED
  4. CODEINE SULFATE [Suspect]
  5. INAPSINE [Suspect]
  6. REGLAN [Suspect]
  7. IMITREX [Suspect]
     Indication: MIGRAINE

REACTIONS (1)
  - DRUG HYPERSENSITIVITY [None]
